FAERS Safety Report 14031203 (Version 1)
Quarter: 2017Q4

REPORT INFORMATION
  Report Type: Spontaneous
  Country: GB (occurrence: GB)
  Receive Date: 20171002
  Receipt Date: 20171002
  Transmission Date: 20180321
  Serious: Yes (Hospitalization)
  Sender: FDA-Public Use
  Company Number: GB-GLAXOSMITHKLINE-GB2017GSK151360

PATIENT
  Age: 78 Year
  Sex: Female

DRUGS (2)
  1. BETNOVATE [Concomitant]
     Active Substance: BETAMETHASONE
  2. VOLTAROL [Suspect]
     Active Substance: DICLOFENAC SODIUM
     Indication: PRODUCT USED FOR UNKNOWN INDICATION
     Dosage: UNK

REACTIONS (7)
  - Pain in extremity [Unknown]
  - Arthritis [Unknown]
  - Nightmare [Unknown]
  - Arthralgia [Unknown]
  - Rash macular [Unknown]
  - Drug hypersensitivity [Unknown]
  - Hypertension [Unknown]

NARRATIVE: CASE EVENT DATE: 201705
